FAERS Safety Report 12196040 (Version 6)
Quarter: 2016Q2

REPORT INFORMATION
  Report Type: Spontaneous
  Country: US (occurrence: US)
  Receive Date: 20160321
  Receipt Date: 20160602
  Transmission Date: 20160815
  Serious: Yes (Hospitalization)
  Sender: FDA-Public Use
  Company Number: US-ACTELION-A-US2016-132880

PATIENT
  Age: 75 Year
  Sex: Female

DRUGS (2)
  1. ADCIRCA [Concomitant]
     Active Substance: TADALAFIL
  2. VELETRI [Suspect]
     Active Substance: EPOPROSTENOL
     Indication: PULMONARY ARTERIAL HYPERTENSION
     Dosage: 22 NG/KG, PER MIN
     Route: 042
     Dates: start: 20150714

REACTIONS (14)
  - Syncope [Unknown]
  - Oxygen saturation decreased [Unknown]
  - Catheter site discharge [Unknown]
  - Infection [Unknown]
  - Catheter site erythema [Unknown]
  - Catheter site pruritus [Unknown]
  - Dermatitis contact [Unknown]
  - Erythema [Unknown]
  - Ascites [Unknown]
  - Rash [Unknown]
  - Asthenia [Unknown]
  - Pruritus [Unknown]
  - Skin infection [Unknown]
  - Application site irritation [Unknown]
